FAERS Safety Report 15780764 (Version 2)
Quarter: 2019Q1

REPORT INFORMATION
  Report Type: Report from Study
  Country: JP (occurrence: JP)
  Receive Date: 20190102
  Receipt Date: 20190115
  Transmission Date: 20190417
  Serious: Yes (Hospitalization, Other)
  Sender: FDA-Public Use
  Company Number: JP-ROCHE-2224520

PATIENT

DRUGS (7)
  1. BASILIXIMAB [Suspect]
     Active Substance: BASILIXIMAB
     Indication: PROPHYLAXIS AGAINST TRANSPLANT REJECTION
     Dosage: 10 MG WHEN BODY WEIGHT WAS {35 KG; 20 MG WHEN BODY WEIGHT WAS }35 KG
     Route: 065
  2. MYCOPHENOLATE MOFETIL. [Suspect]
     Active Substance: MYCOPHENOLATE MOFETIL
     Indication: PROPHYLAXIS AGAINST TRANSPLANT REJECTION
     Dosage: 600 TO 1200 MG/M2 PER DAY
     Route: 065
  3. TACROLIMUS. [Suspect]
     Active Substance: TACROLIMUS
     Indication: PROPHYLAXIS AGAINST TRANSPLANT REJECTION
     Route: 065
  4. CYCLOSPORIN [Suspect]
     Active Substance: CYCLOSPORINE
     Indication: PROPHYLAXIS AGAINST TRANSPLANT REJECTION
     Route: 065
  5. RITUXIMAB. [Suspect]
     Active Substance: RITUXIMAB
     Indication: PROPHYLAXIS AGAINST TRANSPLANT REJECTION
     Dosage: 150-375 MG/M2
     Route: 041
  6. SULFAMETHOXAZOLE/TRIMETHOPRIM [Concomitant]
     Active Substance: SULFAMETHOXAZOLE\TRIMETHOPRIM
     Indication: PROPHYLAXIS
     Route: 065
  7. METHYLPREDNISOLONE. [Suspect]
     Active Substance: METHYLPREDNISOLONE
     Indication: PROPHYLAXIS AGAINST TRANSPLANT REJECTION
     Dosage: 10 TO 15 MG/KG
     Route: 042

REACTIONS (13)
  - Cytomegalovirus infection [Unknown]
  - Viral infection [Unknown]
  - Polyomavirus-associated nephropathy [Unknown]
  - Pneumocystis jirovecii pneumonia [Unknown]
  - Post procedural infection [Unknown]
  - Pneumonia [Unknown]
  - Adenoviral haemorrhagic cystitis [Unknown]
  - Sepsis [Unknown]
  - Bacterial infection [Unknown]
  - Gastrointestinal infection [Unknown]
  - Fungal infection [Unknown]
  - Epstein-Barr virus associated lymphoproliferative disorder [Unknown]
  - Urinary tract infection [Unknown]
